FAERS Safety Report 5495780-0 (Version None)
Quarter: 2007Q4

REPORT INFORMATION
  Report Type: 
  Country: None (occurrence: None)
  Receive Date: 20071025
  Receipt Date: 20070102
  Transmission Date: 20080405
  Serious: No
  Sender: FDA-Public Use
  Company Number: A0624226A

PATIENT
  Age: 60 Year
  Sex: Female

DRUGS (7)
  1. ADVAIR DISKUS 100/50 [Suspect]
     Indication: ASTHMA
     Dosage: 1PUFF TWICE PER DAY
     Route: 055
     Dates: start: 20060401
  2. LISINOPRIL [Concomitant]
  3. PEPCID [Concomitant]
  4. VITAMIN [Concomitant]
  5. CALCIUM [Concomitant]
  6. TRAZODONE HCL [Concomitant]
  7. ASPIRIN [Concomitant]

REACTIONS (4)
  - DYSGEUSIA [None]
  - ILL-DEFINED DISORDER [None]
  - PHARMACEUTICAL PRODUCT COMPLAINT [None]
  - PHARYNGOLARYNGEAL PAIN [None]
